FAERS Safety Report 10661518 (Version 1)
Quarter: 2014Q4

REPORT INFORMATION
  Report Type: Spontaneous
  Country: US (occurrence: US)
  Receive Date: 20141218
  Receipt Date: 20141218
  Transmission Date: 20150529
  Serious: Yes (Hospitalization)
  Sender: FDA-Public Use
  Company Number: US-SA-2014SA170837

PATIENT
  Age: 35 Year
  Sex: Female

DRUGS (7)
  1. LAMOTRIGINE. [Concomitant]
     Active Substance: LAMOTRIGINE
     Indication: BIPOLAR I DISORDER
  2. DIPHENHYDRAMINE [Suspect]
     Active Substance: DIPHENHYDRAMINE
     Route: 065
  3. LORAZEPAM. [Concomitant]
     Active Substance: LORAZEPAM
  4. CLOMIFENE CITRATE [Suspect]
     Active Substance: CLOMIPHENE
     Indication: OVULATION INDUCTION
     Route: 065
  5. HALOPERIDOL. [Suspect]
     Active Substance: HALOPERIDOL
     Route: 065
  6. BUPROPION [Concomitant]
     Active Substance: BUPROPION
     Indication: BIPOLAR I DISORDER
  7. CLONAZEPAM. [Concomitant]
     Active Substance: CLONAZEPAM
     Indication: BIPOLAR I DISORDER

REACTIONS (21)
  - Aggression [Recovered/Resolved]
  - Hypersexuality [Recovered/Resolved]
  - Mood swings [Recovered/Resolved]
  - Intentional self-injury [Recovered/Resolved]
  - Neglect of personal appearance [Recovered/Resolved]
  - Dysphemia [Recovered/Resolved]
  - Delirium [Recovered/Resolved]
  - Disturbance in attention [Recovered/Resolved]
  - Mania [Recovered/Resolved]
  - Echolalia [Recovered/Resolved]
  - Confusional state [Recovered/Resolved]
  - Insomnia [Recovered/Resolved]
  - Anger [Recovered/Resolved]
  - Incoherent [Recovered/Resolved]
  - Psychomotor hyperactivity [Recovered/Resolved]
  - Persecutory delusion [Recovered/Resolved]
  - Speech disorder [Recovered/Resolved]
  - Crying [Recovered/Resolved]
  - Energy increased [Recovered/Resolved]
  - Screaming [Recovered/Resolved]
  - Thinking abnormal [Recovered/Resolved]
